FAERS Safety Report 15049606 (Version 6)
Quarter: 2023Q4

REPORT INFORMATION
  Report Type: Spontaneous
  Country: DE (occurrence: None)
  Receive Date: 20180622
  Receipt Date: 20231016
  Transmission Date: 20240110
  Serious: Yes (Congenital Anomaly, Other)
  Sender: FDA-Public Use
  Company Number: DE-NODEN PHARMA DAC-NOD-2018-000051

PATIENT
  Sex: Female
  Weight: 3.32 kg

DRUGS (92)
  1. ALISKIREN [Suspect]
     Active Substance: ALISKIREN
     Indication: Foetal exposure during pregnancy
     Dosage: PREGNANCY WEEK 0 TO 7 (+2)
     Route: 064
  2. ALISKIREN [Suspect]
     Active Substance: ALISKIREN
     Dosage: UNKNOWN
     Route: 064
  3. ALISKIREN [Suspect]
     Active Substance: ALISKIREN
     Dosage: PREGNANCY WEEK 0 TO 7 (+2)
     Route: 064
  4. ALISKIREN [Suspect]
     Active Substance: ALISKIREN
     Dosage: UNK
     Route: 064
  5. ALISKIREN [Suspect]
     Active Substance: ALISKIREN
     Dosage: PREGNANCY WEEK 0 TO 7 (+2)
     Route: 064
  6. ALISKIREN [Suspect]
     Active Substance: ALISKIREN
     Dosage: UNK
     Route: 064
  7. ALISKIREN [Suspect]
     Active Substance: ALISKIREN
     Dosage: PREGNANCY WEEK 0 TO 7 (+2)
     Route: 064
  8. ALISKIREN [Suspect]
     Active Substance: ALISKIREN
     Dosage: UNKNOWN
     Route: 064
  9. ALISKIREN [Suspect]
     Active Substance: ALISKIREN
     Dosage: PREGNANCY WEEK 0 TO 7 (+2)
     Route: 064
  10. ALISKIREN [Suspect]
     Active Substance: ALISKIREN
     Dosage: UNKNOWN
     Route: 064
  11. ALISKIREN [Suspect]
     Active Substance: ALISKIREN
     Dosage: PREGNANCY WEEK 0 TO 7 (+2)
     Route: 064
  12. ALISKIREN [Suspect]
     Active Substance: ALISKIREN
     Dosage: UNKNOWN
     Route: 064
  13. ALISKIREN [Suspect]
     Active Substance: ALISKIREN
     Dosage: PREGNANCY WEEK 0 TO 7 (+2)
     Route: 064
  14. ALISKIREN [Suspect]
     Active Substance: ALISKIREN
     Dosage: UNK
     Route: 064
  15. ALISKIREN [Suspect]
     Active Substance: ALISKIREN
     Dosage: PREGNANCY WEEK 0 TO 7 (+2)
     Route: 064
  16. ALISKIREN [Suspect]
     Active Substance: ALISKIREN
     Dosage: UNK
     Route: 064
  17. ALISKIREN [Suspect]
     Active Substance: ALISKIREN
     Dosage: PREGNANCY WEEK 0 TO 7 (+2)
     Route: 064
  18. ALISKIREN [Suspect]
     Active Substance: ALISKIREN
     Dosage: UNKNOWN
     Route: 064
  19. METOPROLOL TARTRATE [Suspect]
     Active Substance: METOPROLOL TARTRATE
     Indication: Foetal exposure during pregnancy
     Dosage: PREGNANCY WEEK 7 (+3) TO 38
     Route: 064
  20. METOPROLOL TARTRATE [Suspect]
     Active Substance: METOPROLOL TARTRATE
     Dosage: UNKNOWN
     Route: 064
  21. METOPROLOL TARTRATE [Suspect]
     Active Substance: METOPROLOL TARTRATE
     Dosage: PREGNANCY WEEK 7 (+3) TO 38
     Route: 064
  22. METOPROLOL TARTRATE [Suspect]
     Active Substance: METOPROLOL TARTRATE
     Dosage: UNKNOWN
     Route: 064
  23. HYDROCHLOROTHIAZIDE [Suspect]
     Active Substance: HYDROCHLOROTHIAZIDE
     Indication: Foetal exposure during pregnancy
     Dosage: PREGNANCY WEEK 0 TO 7 (+2)
     Route: 064
  24. HYDROCHLOROTHIAZIDE [Suspect]
     Active Substance: HYDROCHLOROTHIAZIDE
     Dosage: UNKNOWN
  25. HYDROCHLOROTHIAZIDE [Suspect]
     Active Substance: HYDROCHLOROTHIAZIDE
     Dosage: PREGNANCY WEEK 0 TO 7 (+2)
     Route: 064
  26. HYDROCHLOROTHIAZIDE [Suspect]
     Active Substance: HYDROCHLOROTHIAZIDE
     Dosage: UNKNOWN
  27. HYDROCHLOROTHIAZIDE [Suspect]
     Active Substance: HYDROCHLOROTHIAZIDE
     Dosage: PREGNANCY WEEK 0 TO 7 (+2)
     Route: 064
  28. HYDROCHLOROTHIAZIDE [Suspect]
     Active Substance: HYDROCHLOROTHIAZIDE
     Dosage: UNKNOWN
  29. HYDROCHLOROTHIAZIDE [Suspect]
     Active Substance: HYDROCHLOROTHIAZIDE
     Dosage: PREGNANCY WEEK 0 TO 7 (+2)
     Route: 064
  30. HYDROCHLOROTHIAZIDE [Suspect]
     Active Substance: HYDROCHLOROTHIAZIDE
     Dosage: UNKNOWN
  31. HYDROCHLOROTHIAZIDE [Suspect]
     Active Substance: HYDROCHLOROTHIAZIDE
     Dosage: PREGNANCY WEEK 0 TO 7 (+2)
     Route: 064
  32. HYDROCHLOROTHIAZIDE [Suspect]
     Active Substance: HYDROCHLOROTHIAZIDE
     Dosage: UNKNOWN
  33. INSULIN NOS [Suspect]
     Active Substance: INSULIN NOS
     Indication: Foetal exposure during pregnancy
     Dosage: 266 DAYS
     Route: 064
  34. INSULIN NOS [Suspect]
     Active Substance: INSULIN NOS
  35. INSULIN NOS [Suspect]
     Active Substance: INSULIN NOS
  36. AMLODIPINE [Suspect]
     Active Substance: AMLODIPINE BESYLATE
     Indication: Foetal exposure during pregnancy
     Dosage: PREGANANCY WEEK 0 TO 7 (+2)
     Route: 064
  37. AMLODIPINE [Suspect]
     Active Substance: AMLODIPINE BESYLATE
     Dosage: UNKNOWN
     Route: 064
  38. AMLODIPINE [Suspect]
     Active Substance: AMLODIPINE BESYLATE
     Dosage: UNKNOWN
     Route: 064
  39. AMLODIPINE [Suspect]
     Active Substance: AMLODIPINE BESYLATE
     Dosage: PREGANANCY WEEK 0 TO 7 (+2)
     Route: 064
  40. AMLODIPINE [Suspect]
     Active Substance: AMLODIPINE BESYLATE
     Dosage: UNKNOWN
     Route: 064
  41. AMLODIPINE [Suspect]
     Active Substance: AMLODIPINE BESYLATE
     Dosage: UNKNOWN
     Route: 064
  42. AMLODIPINE [Suspect]
     Active Substance: AMLODIPINE BESYLATE
     Dosage: PREGANANCY WEEK 0 TO 7 (+2)
     Route: 064
  43. AMLODIPINE [Suspect]
     Active Substance: AMLODIPINE BESYLATE
     Dosage: UNKNOWN
     Route: 064
  44. AMLODIPINE [Suspect]
     Active Substance: AMLODIPINE BESYLATE
     Dosage: UNKNOWN
     Route: 064
  45. INDAPAMIDE [Suspect]
     Active Substance: INDAPAMIDE
     Indication: Foetal exposure during pregnancy
     Dosage: UNKNOWN
     Route: 064
  46. INDAPAMIDE [Suspect]
     Active Substance: INDAPAMIDE
     Dosage: PREGNANACY WEEK 0 TO 7 (+2)
     Route: 064
  47. INDAPAMIDE [Suspect]
     Active Substance: INDAPAMIDE
     Dosage: UNKNOWN
     Route: 064
  48. INDAPAMIDE [Suspect]
     Active Substance: INDAPAMIDE
     Dosage: PREGNANACY WEEK 0 TO 7 (+2)
     Route: 064
  49. INDAPAMIDE [Suspect]
     Active Substance: INDAPAMIDE
     Dosage: UNKNOWN
     Route: 064
  50. INDAPAMIDE [Suspect]
     Active Substance: INDAPAMIDE
     Dosage: PREGNANACY WEEK 0 TO 7 (+2)
     Route: 064
  51. INDAPAMIDE [Suspect]
     Active Substance: INDAPAMIDE
     Dosage: UNKNOWN
     Route: 064
  52. INDAPAMIDE [Suspect]
     Active Substance: INDAPAMIDE
     Dosage: PREGNANACY WEEK 0 TO 7 (+2)
     Route: 064
  53. INDAPAMIDE [Suspect]
     Active Substance: INDAPAMIDE
     Dosage: UNKNOWN
     Route: 064
  54. INDAPAMIDE [Suspect]
     Active Substance: INDAPAMIDE
     Dosage: PREGNANACY WEEK 0 TO 7 (+2)
     Route: 064
  55. METFORMIN HYDROCHLORIDE [Suspect]
     Active Substance: METFORMIN HYDROCHLORIDE
     Indication: Foetal exposure during pregnancy
     Dosage: UNK
     Route: 064
  56. METFORMIN HYDROCHLORIDE [Suspect]
     Active Substance: METFORMIN HYDROCHLORIDE
     Dosage: PREGNANACY WEEK 0 TO 7 (+2)UNK
     Route: 064
  57. METFORMIN HYDROCHLORIDE [Suspect]
     Active Substance: METFORMIN HYDROCHLORIDE
     Dosage: UNK
     Route: 064
  58. METFORMIN HYDROCHLORIDE [Suspect]
     Active Substance: METFORMIN HYDROCHLORIDE
     Dosage: PREGNANACY WEEK 0 TO 7 (+2)UNK
     Route: 064
  59. METFORMIN HYDROCHLORIDE [Suspect]
     Active Substance: METFORMIN HYDROCHLORIDE
     Dosage: UNK
     Route: 064
  60. METFORMIN HYDROCHLORIDE [Suspect]
     Active Substance: METFORMIN HYDROCHLORIDE
     Dosage: PREGNANACY WEEK 0 TO 7 (+2)UNK
     Route: 064
  61. METFORMIN HYDROCHLORIDE [Suspect]
     Active Substance: METFORMIN HYDROCHLORIDE
     Dosage: UNKNOWN
     Route: 064
  62. METFORMIN HYDROCHLORIDE [Suspect]
     Active Substance: METFORMIN HYDROCHLORIDE
     Dosage: PREGNANACY WEEK 0 TO 7 (+2)UNK
     Route: 064
  63. METHYLDOPA [Suspect]
     Active Substance: METHYLDOPA
     Indication: Foetal exposure during pregnancy
     Dosage: PREGNANCY WEEK 7 (+3 )TO 10
     Route: 064
  64. METHYLDOPA [Suspect]
     Active Substance: METHYLDOPA
     Dosage: UNK
     Route: 064
  65. METHYLDOPA [Suspect]
     Active Substance: METHYLDOPA
     Dosage: PREGNANCY WEEK 7 (+3 )TO 10
     Route: 064
  66. METHYLDOPA [Suspect]
     Active Substance: METHYLDOPA
     Dosage: UNK
     Route: 064
  67. METHYLDOPA [Suspect]
     Active Substance: METHYLDOPA
     Dosage: PREGNANCY WEEK 7 (+3 )TO 10
     Route: 064
  68. METHYLDOPA [Suspect]
     Active Substance: METHYLDOPA
     Dosage: UNK
     Route: 064
  69. METHYLDOPA [Suspect]
     Active Substance: METHYLDOPA
     Dosage: PREGNANCY WEEK 7 (+3 )TO 10
     Route: 064
  70. METHYLDOPA [Suspect]
     Active Substance: METHYLDOPA
     Dosage: UNK
     Route: 064
  71. METHYLDOPA [Suspect]
     Active Substance: METHYLDOPA
     Dosage: PREGNANCY WEEK 7 (+3 )TO 10
     Route: 064
  72. METHYLDOPA [Suspect]
     Active Substance: METHYLDOPA
     Dosage: UNKNOWN
     Route: 064
  73. BISOPROLOL [Suspect]
     Active Substance: BISOPROLOL\BISOPROLOL FUMARATE
     Indication: Foetal exposure during pregnancy
     Dosage: UNKNOWN
     Route: 064
  74. BISOPROLOL [Suspect]
     Active Substance: BISOPROLOL\BISOPROLOL FUMARATE
     Dosage: PREGNANCY WEEK 0 T0 7 (+2)
     Route: 064
  75. BISOPROLOL [Suspect]
     Active Substance: BISOPROLOL\BISOPROLOL FUMARATE
     Dosage: UNK
     Route: 064
  76. BISOPROLOL [Suspect]
     Active Substance: BISOPROLOL\BISOPROLOL FUMARATE
     Dosage: PREGNANCY WEEK 0 T0 7 (+2)
     Route: 064
  77. BISOPROLOL [Suspect]
     Active Substance: BISOPROLOL\BISOPROLOL FUMARATE
     Dosage: UNK
     Route: 064
  78. BISOPROLOL [Suspect]
     Active Substance: BISOPROLOL\BISOPROLOL FUMARATE
     Dosage: PREGNANCY WEEK 0 T0 7 (+2)
     Route: 064
  79. PERINDOPRIL [Suspect]
     Active Substance: PERINDOPRIL
     Indication: Foetal exposure during pregnancy
     Dosage: PREGNANCY WEEK 0 TO 7 (+2)
     Route: 064
  80. PERINDOPRIL [Suspect]
     Active Substance: PERINDOPRIL
     Dosage: UNKNOWN
     Route: 064
  81. PERINDOPRIL [Suspect]
     Active Substance: PERINDOPRIL
     Dosage: PREGNANCY WEEK 0 TO 7 (+2)
     Route: 064
  82. PERINDOPRIL [Suspect]
     Active Substance: PERINDOPRIL
     Dosage: UNKNOWN
     Route: 064
  83. PERINDOPRIL [Suspect]
     Active Substance: PERINDOPRIL
     Dosage: PREGNANCY WEEK 0 TO 7 (+2)
     Route: 064
  84. PERINDOPRIL [Suspect]
     Active Substance: PERINDOPRIL
     Dosage: UNKNOWN
     Route: 064
  85. FOLIC ACID [Suspect]
     Active Substance: FOLIC ACID
     Indication: Foetal exposure during pregnancy
     Dosage: UNKNOWN
     Route: 064
  86. FOLIC ACID [Suspect]
     Active Substance: FOLIC ACID
     Dosage: UNKNOWN
     Route: 064
  87. INSULIN ASPART [Suspect]
     Active Substance: INSULIN ASPART
     Indication: Foetal exposure during pregnancy
     Dosage: UNKNOWN
     Route: 064
  88. INSULIN ASPART [Suspect]
     Active Substance: INSULIN ASPART
     Dosage: UNKNOWN
     Route: 064
  89. INSULIN GLARGINE [Suspect]
     Active Substance: INSULIN GLARGINE
     Indication: Foetal exposure during pregnancy
     Dosage: UNKNOWN
     Route: 064
  90. INSULIN GLARGINE [Suspect]
     Active Substance: INSULIN GLARGINE
     Dosage: UNKNOWN
     Route: 064
  91. INSULIN HUMAN [Suspect]
     Active Substance: INSULIN HUMAN
     Indication: Foetal exposure during pregnancy
     Dosage: UNKNOWN
     Route: 064
  92. INSULIN HUMAN [Suspect]
     Active Substance: INSULIN HUMAN
     Dosage: UNKNOWN
     Route: 064

REACTIONS (7)
  - Intestinal malrotation [Unknown]
  - Conjoined twins [Unknown]
  - Persistent cloaca [Unknown]
  - Congenital bladder anomaly [Unknown]
  - Congenital musculoskeletal disorder of limbs [Unknown]
  - Urachal abnormality [Unknown]
  - Foetal exposure during pregnancy [Unknown]

NARRATIVE: CASE EVENT DATE: 20180101
